FAERS Safety Report 5270090-5 (Version None)
Quarter: 2007Q1

REPORT INFORMATION
  Report Type: 
  Country: None (occurrence: None)
  Receive Date: 20061213
  Receipt Date: 20050930
  Transmission Date: 20070707
  Serious: No
  Sender: FDA-Public Use
  Company Number: 2005UW14664

PATIENT
  Age: 70 Year
  Sex: Female

DRUGS (1)
  1. TAMOXIFEN CITRATE [Suspect]

REACTIONS (2)
  - ENDOMETRIAL HYPERTROPHY [None]
  - UTERINE LEIOMYOMA [None]
